FAERS Safety Report 6831834-1 (Version None)
Quarter: 2010Q3

REPORT INFORMATION
  Report Type: 
  Country: None (occurrence: None)
  Receive Date: 20100712
  Receipt Date: 20100706
  Transmission Date: 20110219
  Serious: Yes (Congenital Anomaly)
  Sender: FDA-Public Use
  Company Number: US-GILEAD-2010-0030154

PATIENT

DRUGS (10)
  1. VIREAD [Suspect]
     Indication: DRUG EXPOSURE DURING PREGNANCY
     Route: 064
  2. ZIAGEN [Concomitant]
     Route: 064
  3. VIDEX [Concomitant]
     Route: 064
  4. SUSTIVA [Concomitant]
     Route: 064
  5. EPIVIR [Concomitant]
     Route: 064
  6. NORVIR [Concomitant]
     Route: 064
  7. FORTOVASE [Concomitant]
     Route: 064
  8. ZERIT [Concomitant]
     Route: 064
  9. KALETRA [Concomitant]
     Route: 064
  10. LEXIVA [Concomitant]
     Route: 064

REACTIONS (1)
  - PLAGIOCEPHALY [None]
